FAERS Safety Report 5140141-7 (Version None)
Quarter: 2006Q4

REPORT INFORMATION
  Report Type: 
  Country: None (occurrence: None)
  Receive Date: 20061025
  Receipt Date: 20061025
  Transmission Date: 20070319
  Serious: Yes (Other)
  Sender: FDA-Public Use
  Company Number: None

PATIENT
  Age: 74 Year
  Sex: Male
  Weight: 77.1 kg

DRUGS (5)
  1. FOSINOPRIL SODIUM [Suspect]
  2. SODIUM BICARBONATE [Concomitant]
  3. RAMIPRIL [Concomitant]
  4. COUMADIN [Concomitant]
  5. FLUVASTATIN NA [Concomitant]

REACTIONS (1)
  - DIZZINESS [None]
